FAERS Safety Report 14410209 (Version 1)
Quarter: 2018Q1

REPORT INFORMATION
  Report Type: Report from Study
  Country: None (occurrence: US)
  Receive Date: 20180119
  Receipt Date: 20180119
  Transmission Date: 20180509
  Serious: Yes (Other)
  Sender: FDA-Public Use
  Company Number: US-BIOVITRUM-2017US0931

PATIENT
  Sex: Female
  Weight: 18.8 kg

DRUGS (3)
  1. ORFADIN [Suspect]
     Active Substance: NITISINONE
     Indication: TYROSINAEMIA
     Route: 048
     Dates: start: 20170109
  2. DEPAKOTE [Concomitant]
     Active Substance: DIVALPROEX SODIUM
     Dates: start: 2017
  3. ORFADIN [Suspect]
     Active Substance: NITISINONE
     Route: 048
     Dates: start: 20170817

REACTIONS (2)
  - Seizure [Unknown]
  - Developmental delay [Unknown]
